FAERS Safety Report 15351438 (Version 1)
Quarter: 2018Q3

REPORT INFORMATION
  Report Type: Spontaneous
  Country: US (occurrence: US)
  Receive Date: 20180905
  Receipt Date: 20180905
  Transmission Date: 20181010
  Serious: No
  Sender: FDA-Public Use
  Company Number: US-TEVA-2018-US-950792

PATIENT
  Sex: Male

DRUGS (2)
  1. CLONAZEPAM. [Suspect]
     Active Substance: CLONAZEPAM
     Indication: POST-TRAUMATIC STRESS DISORDER
     Dosage: 1.5 MILLIGRAM DAILY;
     Route: 065
     Dates: start: 20180824
  2. CLONAZEPAM. [Suspect]
     Active Substance: CLONAZEPAM
     Indication: NERVE INJURY

REACTIONS (5)
  - Drug ineffective [Unknown]
  - Blood pressure measurement [Unknown]
  - Heart rate increased [Unknown]
  - Asthenia [Unknown]
  - Feeling abnormal [Unknown]
